FAERS Safety Report 6453114-9 (Version None)
Quarter: 2009Q4

REPORT INFORMATION
  Report Type: 
  Country: None (occurrence: None)
  Receive Date: 20091123
  Receipt Date: 20091123
  Transmission Date: 20100525
  Serious: Yes (Life-Threatening)
  Sender: FDA-Public Use
  Company Number: None

PATIENT
  Age: 74 Year
  Sex: Male
  Weight: 67.8 kg

DRUGS (1)
  1. RITUXIMAB [Suspect]
     Indication: CHRONIC LYMPHOCYTIC LEUKAEMIA
     Dosage: 675 MG ONCE IV
     Route: 042
     Dates: start: 20090102, end: 20090102

REACTIONS (6)
  - CHILLS [None]
  - CONFUSIONAL STATE [None]
  - HYPOTENSION [None]
  - HYPOXIA [None]
  - PYREXIA [None]
  - RESPIRATORY DEPRESSION [None]
